FAERS Safety Report 24250715 (Version 1)
Quarter: 2024Q3

REPORT INFORMATION
  Report Type: Spontaneous
  Country: US (occurrence: US)
  Receive Date: 20240826
  Receipt Date: 20240826
  Transmission Date: 20241017
  Serious: No
  Sender: MEDEXUS PHARMA
  Company Number: US-MEDEXUS PHARMA, INC.-2023MED00479

PATIENT
  Sex: Female

DRUGS (2)
  1. RASUVO [Suspect]
     Active Substance: METHOTREXATE SODIUM
     Indication: Rheumatoid arthritis
     Dosage: 10 MG INJECTED IN ABDOMEN, 1X/WEEK ON SATURDAYS
     Route: 065
     Dates: start: 2021
  2. UNSPECIFIED INGREDIENT [Concomitant]
     Active Substance: UNSPECIFIED INGREDIENT

REACTIONS (4)
  - Skin discolouration [Recovered/Resolved]
  - Exposure via skin contact [Recovered/Resolved]
  - Device leakage [Recovered/Resolved]
  - Device loosening [Recovered/Resolved]
